FAERS Safety Report 24528163 (Version 1)
Quarter: 2024Q4

REPORT INFORMATION
  Report Type: Spontaneous
  Country: CA (occurrence: CA)
  Receive Date: 20241021
  Receipt Date: 20241021
  Transmission Date: 20250114
  Serious: Yes (Disabling, Other)
  Sender: AMGEN
  Company Number: CA-AMGEN-CANSP2024207161

PATIENT
  Age: 68 Year
  Sex: Female
  Weight: 60 kg

DRUGS (5)
  1. PROLIA [Suspect]
     Active Substance: DENOSUMAB
     Indication: Osteoporosis
     Dosage: 60 MILLIGRAM (1 EVERY 7 MONTHS)
     Route: 058
  2. CALCIUM [Concomitant]
     Active Substance: CALCIUM
     Dosage: UNK
  3. OXAZEPAM [Concomitant]
     Active Substance: OXAZEPAM
     Dosage: UNK
  4. VITAMIN D [Concomitant]
     Active Substance: VITAMIN D NOS
     Dosage: UNK
  5. XEOMIN [Concomitant]
     Active Substance: INCOBOTULINUMTOXINA
     Dosage: UNK

REACTIONS (3)
  - Hypoacusis [Recovered/Resolved with Sequelae]
  - Sudden hearing loss [Recovered/Resolved with Sequelae]
  - Intratympanic injection [Recovered/Resolved with Sequelae]
